FAERS Safety Report 23334041 (Version 1)
Quarter: 2023Q4

REPORT INFORMATION
  Report Type: Report from Study
  Country: US (occurrence: US)
  Receive Date: 20231223
  Receipt Date: 20231223
  Transmission Date: 20240109
  Serious: Yes (Other)
  Sender: FDA-Public Use
  Company Number: US-UCBSA-2023059305

PATIENT
  Sex: Male
  Weight: 96.5 kg

DRUGS (13)
  1. BRIVARACETAM [Suspect]
     Active Substance: BRIVARACETAM
     Indication: Focal dyscognitive seizures
     Dosage: 150 MILLIGRAM, 2X/DAY (BID) (1.5 TABLETS X 100 MG)
     Route: 048
     Dates: start: 202208
  2. BRIVARACETAM [Suspect]
     Active Substance: BRIVARACETAM
     Indication: Idiopathic partial epilepsy
  3. BRIVARACETAM [Suspect]
     Active Substance: BRIVARACETAM
     Indication: Off label use
  4. LAMICTAL [Concomitant]
     Active Substance: LAMOTRIGINE
     Indication: Product used for unknown indication
     Dosage: 200 MILLIGRAM DAILY,ONCE AFTER BREAKFAST.AND ONCE IN THE AFTERNOON, AFTER EATING
     Route: 048
  5. LAMICTAL [Concomitant]
     Active Substance: LAMOTRIGINE
     Dosage: 100 MILLIGRAM, ONCE DAILY (QD)
     Route: 048
  6. VITAMIN D3 [Concomitant]
     Active Substance: CHOLECALCIFEROL
     Indication: Product used for unknown indication
     Dosage: 2000 INTERNATIONAL UNIT DAILY
     Route: 048
  7. NAMENDA [Concomitant]
     Active Substance: MEMANTINE HYDROCHLORIDE
     Indication: Product used for unknown indication
     Dosage: 10 MILLIGRAM, 2X/DAY (BID)
     Route: 048
  8. FOSAMAX [Concomitant]
     Active Substance: ALENDRONATE SODIUM
     Indication: Product used for unknown indication
     Dosage: 70 MILLIGRAM, WEEKLY (QW), TAKE WITH WATER 30 MINUTES BEFORE BREAKFAST,
     Route: 048
  9. VITAMIN D2 [Concomitant]
     Active Substance: ERGOCALCIFEROL
     Indication: Product used for unknown indication
     Dosage: 50000 INTERNATIONAL UNIT
  10. CALCIUM CARBONATE [Concomitant]
     Active Substance: CALCIUM CARBONATE
     Indication: Product used for unknown indication
     Dosage: 600 MILLIGRAM DAILY
     Route: 048
  11. AVODART [Concomitant]
     Active Substance: DUTASTERIDE
     Indication: Product used for unknown indication
     Dosage: 0.5 MILLIGRAM DAILY
     Route: 048
  12. ZOCOR [Concomitant]
     Active Substance: SIMVASTATIN
     Indication: Product used for unknown indication
     Dosage: 20 MILLIGRAM, ONCE DAILY (QD)
  13. ASPIRIN [Concomitant]
     Active Substance: ASPIRIN
     Indication: Product used for unknown indication
     Dosage: 81 MILLIGRAM DAILY
     Route: 048

REACTIONS (8)
  - Seizure [Unknown]
  - Partial seizures [Recovered/Resolved]
  - Medical device battery replacement [Recovered/Resolved]
  - Blood pressure abnormal [Unknown]
  - Fall [Unknown]
  - Off label use [Unknown]
  - Product dose omission issue [Unknown]
  - Wrong technique in product usage process [Unknown]

NARRATIVE: CASE EVENT DATE: 20230101
